FAERS Safety Report 9276087 (Version 1)
Quarter: 2012Q4

REPORT INFORMATION
  Report Type: Spontaneous
  Country: GB (occurrence: None)
  Receive Date: 20121109
  Receipt Date: 20121109
  Transmission Date: 20130627
  Serious: Yes (Death, Other)
  Sender: FDA-Public Use
  Company Number: 2011S1000902

PATIENT
  Age: 91 Year
  Sex: Male

DRUGS (14)
  1. CUBICIN [Suspect]
     Indication: ENTEROCOCCAL INFECTION
     Route: 042
     Dates: start: 20111116, end: 20111128
  2. ACICLOVIR [Concomitant]
  3. ACETYLSALICYLIC ACID [Concomitant]
  4. ATORVASTATIN [Concomitant]
  5. BISOPROLOL [Concomitant]
  6. CLOPIDOGREL [Concomitant]
  7. ENOXAPARIN [Concomitant]
  8. FUROSEMIDE [Concomitant]
  9. HALOPERIDOL [Concomitant]
  10. INSULIN [Concomitant]
  11. ISOSORBIDE MONONITRATE [Concomitant]
  12. PARACETAMOL [Concomitant]
  13. RISPERDAL [Concomitant]
  14. SALBUTAMOL [Concomitant]

REACTIONS (6)
  - Pulmonary oedema [None]
  - Fluid overload [None]
  - Eosinophilic pneumonia [None]
  - Unresponsive to stimuli [None]
  - Off label use [None]
  - Bronchopneumonia [None]
